FAERS Safety Report 6984428-1 (Version None)
Quarter: 2010Q3

REPORT INFORMATION
  Report Type: 
  Country: None (occurrence: None)
  Receive Date: 20100915
  Receipt Date: 20100909
  Transmission Date: 20110219
  Serious: Yes (Other)
  Sender: FDA-Public Use
  Company Number: US-RB-007132-10

PATIENT
  Age: 19 Year
  Sex: Female

DRUGS (1)
  1. BUPRENORPHINE (GENERIC) [Suspect]
     Indication: DRUG DEPENDENCE
     Route: 060
     Dates: start: 20100408

REACTIONS (2)
  - DRUG EXPOSURE DURING PREGNANCY [None]
  - PREMATURE LABOUR [None]
